FAERS Safety Report 6703161-4 (Version None)
Quarter: 2010Q2

REPORT INFORMATION
  Report Type: 
  Country: None (occurrence: None)
  Receive Date: 20100430
  Receipt Date: 20100422
  Transmission Date: 20101027
  Serious: No
  Sender: FDA-Public Use
  Company Number: US-BIOGENIDEC-2010BI013393

PATIENT
  Age: 46 Year
  Sex: Female

DRUGS (4)
  1. AVONEX [Suspect]
     Indication: MULTIPLE SCLEROSIS
     Route: 030
     Dates: start: 20100212
  2. AVONEX [Suspect]
     Route: 030
     Dates: start: 20020101, end: 20030801
  3. AVONEX [Suspect]
     Route: 030
     Dates: start: 20030901, end: 20040101
  4. AVONEX [Suspect]
     Route: 030
     Dates: start: 20060101, end: 20080501

REACTIONS (2)
  - INFLUENZA LIKE ILLNESS [None]
  - LOSS OF CONTROL OF LEGS [None]
